FAERS Safety Report 20374328 (Version 2)
Quarter: 2022Q1

REPORT INFORMATION
  Report Type: Spontaneous
  Country: JP (occurrence: JP)
  Receive Date: 20220125
  Receipt Date: 20220201
  Transmission Date: 20220423
  Serious: Yes (Other)
  Sender: FDA-Public Use
  Company Number: JP-Teva Takeda Yakuhin-2022-JP-000435J

PATIENT
  Age: 69 Year
  Sex: Male

DRUGS (4)
  1. ASPIRIN\LANSOPRAZOLE [Suspect]
     Active Substance: ASPIRIN\LANSOPRAZOLE
     Indication: Thrombosis
     Dosage: 1 DOSAGE FORM = 100MG ASPIRIN + 15MG LANSOPRAZOLEDOSAGE IS UNKNOWN
     Route: 048
     Dates: start: 202104, end: 20220121
  2. BISOPROLOL [Concomitant]
     Active Substance: BISOPROLOL
     Dosage: DOSAGE IS UNKNOWN
     Route: 050
  3. ENALAPRIL [Concomitant]
     Active Substance: ENALAPRIL
     Dosage: DOSAGE IS UNKNOWN
     Route: 050
  4. ROSUVASTATIN OD [Concomitant]
     Dosage: DOSAGE IS UNKNOWN
     Route: 048

REACTIONS (2)
  - Colitis microscopic [Unknown]
  - Diarrhoea [Unknown]

NARRATIVE: CASE EVENT DATE: 20211201
